FAERS Safety Report 11802013 (Version 1)
Quarter: 2015Q4

REPORT INFORMATION
  Report Type: Spontaneous
  Country: US (occurrence: US)
  Receive Date: 20151204
  Receipt Date: 20151204
  Transmission Date: 20160305
  Serious: No
  Sender: FDA-Public Use
  Company Number: US-BAYER-2015-475685

PATIENT
  Age: 17 Year
  Sex: Female

DRUGS (3)
  1. SKYLA [Suspect]
     Active Substance: LEVONORGESTREL
     Indication: DYSMENORRHOEA
  2. SKYLA [Suspect]
     Active Substance: LEVONORGESTREL
     Indication: CONTRACEPTION
     Dosage: 14 MCG/24HR, CONT
     Route: 015
     Dates: start: 201506
  3. SKYLA [Suspect]
     Active Substance: LEVONORGESTREL
     Indication: MENSTRUAL CYCLE MANAGEMENT

REACTIONS (6)
  - Abdominal pain upper [None]
  - Premenstrual syndrome [None]
  - Medical device discomfort [None]
  - Abdominal pain lower [None]
  - Menstruation delayed [Not Recovered/Not Resolved]
  - Vaginal haemorrhage [None]

NARRATIVE: CASE EVENT DATE: 201509
